FAERS Safety Report 9636743 (Version 2)
Quarter: 2013Q4

REPORT INFORMATION
  Report Type: Spontaneous
  Country: MA (occurrence: MA)
  Receive Date: 20131022
  Receipt Date: 20131025
  Transmission Date: 20140711
  Serious: Yes (Hospitalization, Disabling)
  Sender: FDA-Public Use
  Company Number: MA-ROCHE-1292095

PATIENT
  Age: 55 Year
  Sex: Female

DRUGS (2)
  1. MABTHERA [Suspect]
     Indication: RHEUMATOID ARTHRITIS
     Route: 040
     Dates: start: 201309, end: 201309
  2. METHOTREXATE [Suspect]
     Indication: RHEUMATOID ARTHRITIS
     Route: 048

REACTIONS (1)
  - Lung disorder [Recovered/Resolved with Sequelae]
